FAERS Safety Report 4433825-7 (Version None)
Quarter: 2004Q3

REPORT INFORMATION
  Report Type: 
  Country: None (occurrence: None)
  Receive Date: 20040826
  Receipt Date: 20040812
  Transmission Date: 20050211
  Serious: Yes (Other)
  Sender: FDA-Public Use
  Company Number: US-ROCHE-377788

PATIENT
  Age: 49 Year
  Sex: Male

DRUGS (3)
  1. PEGASYS [Suspect]
     Indication: DRUG USE FOR UNKNOWN INDICATION
     Route: 058
     Dates: start: 20040521
  2. COPEGUS [Suspect]
     Indication: DRUG USE FOR UNKNOWN INDICATION
     Dosage: DOSAGE REGIMEN REPORTED AS: 1000MG.
     Route: 048
     Dates: start: 20040521, end: 20040807
  3. COPEGUS [Suspect]
     Dosage: DOSAGE REGIMEN REPORTED AS: 1200MG.
     Route: 048
     Dates: start: 20040807

REACTIONS (2)
  - HEARING IMPAIRED [None]
  - PYREXIA [None]
